FAERS Safety Report 4771665-X (Version None)
Quarter: 2005Q3

REPORT INFORMATION
  Report Type: 
  Country: None (occurrence: None)
  Receive Date: 20050916
  Receipt Date: 20050909
  Transmission Date: 20060218
  Serious: Yes (Other)
  Sender: FDA-Public Use
  Company Number: PHBS2005MX13364

PATIENT
  Age: 60 Year
  Sex: Female

DRUGS (2)
  1. FEMARA [Suspect]
     Indication: BREAST CANCER
     Dosage: 2 MG/DAY
     Route: 048
     Dates: start: 20050701
  2. NOVOTIRAL [Concomitant]
     Indication: THYROID ATROPHY
     Dosage: 100 X 20 UG
     Route: 048
     Dates: start: 19910909, end: 20050909

REACTIONS (2)
  - ARTHRALGIA [None]
  - SUFFOCATION FEELING [None]
